FAERS Safety Report 4544527-0 (Version None)
Quarter: 2004Q4

REPORT INFORMATION
  Report Type: 
  Country: None (occurrence: None)
  Receive Date: 20041230
  Receipt Date: 20041215
  Transmission Date: 20050328
  Serious: Yes (Life-Threatening, Hospitalization)
  Sender: FDA-Public Use
  Company Number: 2004-0007467

PATIENT
  Age: 61 Year
  Sex: Female

DRUGS (14)
  1. HEPSERA [Suspect]
     Indication: HEPATITIS B
     Dosage: 10 MG, 1 IN 1 D, ORAL
     Route: 048
     Dates: start: 20040312
  2. ZEFRIX (LAMIVUDINE) [Concomitant]
  3. SOPROL (BISOPROLOL FUMARATE) [Concomitant]
  4. LASILIX (FUROSEMIDE) (1 DOSAGE FORMS) [Concomitant]
  5. PRAVASTATIN [Concomitant]
  6. VASTAREL (TRIMETAZIDINE) [Concomitant]
  7. GAVISCON [Concomitant]
  8. ZOVIRAX (ACICLOVIR SODIUM) [Concomitant]
  9. ADVIL [Concomitant]
  10. PREVISCAN (FLUINDIONE) [Concomitant]
  11. FLUDEX (NDAPAMIDE) [Concomitant]
  12. TOCO 500 (TOCOPHERYL ACETATE) [Concomitant]
  13. POTASSIUM CHLORIDE [Concomitant]
  14. ASPEGIC 1000 [Concomitant]

REACTIONS (10)
  - ATRIAL FIBRILLATION [None]
  - BRADYCARDIA [None]
  - CAROTID ARTERY DISEASE [None]
  - CYTOLYTIC HEPATITIS [None]
  - HYPERCHOLESTEROLAEMIA [None]
  - HYPERTRIGLYCERIDAEMIA [None]
  - ISCHAEMIC STROKE [None]
  - MYOCARDIAL INFARCTION [None]
  - PULMONARY EMBOLISM [None]
  - ULTRASOUND DOPPLER ABNORMAL [None]
